FAERS Safety Report 9897832 (Version 1)
Quarter: 2014Q1

REPORT INFORMATION
  Report Type: Spontaneous
  Country: DE (occurrence: DE)
  Receive Date: 20140214
  Receipt Date: 20140214
  Transmission Date: 20141002
  Serious: Yes (Other)
  Sender: FDA-Public Use
  Company Number: DE-DRREDDYS-GER/GER/14/0038087

PATIENT
  Age: 33 Year
  Sex: Female
  Weight: 108 kg

DRUGS (5)
  1. VENLAFAXINE [Suspect]
     Indication: POST-TRAUMATIC STRESS DISORDER
     Dosage: 150MG/D (BIS 75)/ TILL FEBR, 14TH 2013:150 MG/D, THEN 75 MG/D
     Route: 048
     Dates: start: 20120926, end: 20130214
  2. VENLAFAXINE [Suspect]
     Route: 048
     Dates: start: 20130215, end: 20130601
  3. FEMIBION SCHWANGERSCHAFT 1 [Concomitant]
     Indication: PROPHYLAXIS OF NEURAL TUBE DEFECT
     Route: 048
     Dates: start: 20120825, end: 20130601
  4. METRONIDAZOL [Concomitant]
     Indication: URINARY TRACT INFECTION
     Route: 042
     Dates: start: 20121102, end: 20121102
  5. CEFUROXIM [Concomitant]
     Indication: URINARY TRACT INFECTION
     Route: 042
     Dates: start: 20121102, end: 20121102

REACTIONS (4)
  - Gestational diabetes [Unknown]
  - Urinary tract infection [Unknown]
  - Caesarean section [Unknown]
  - Exposure during pregnancy [Unknown]
